FAERS Safety Report 17444522 (Version 3)
Quarter: 2020Q1

REPORT INFORMATION
  Report Type: Report from Study
  Country: CO (occurrence: CO)
  Receive Date: 20200221
  Receipt Date: 20200319
  Transmission Date: 20200409
  Serious: Yes (Death, Other)
  Sender: FDA-Public Use
  Company Number: CO-ASTELLAS-2019US024168

PATIENT
  Age: 70 Year
  Sex: Male

DRUGS (1)
  1. ENZALUTAMIDE [Suspect]
     Active Substance: ENZALUTAMIDE
     Indication: HORMONE-REFRACTORY PROSTATE CANCER
     Route: 048
     Dates: start: 20190529, end: 20200217

REACTIONS (14)
  - Death [Fatal]
  - Platelet count decreased [Unknown]
  - Anaemia [Unknown]
  - Testicular swelling [Not Recovered/Not Resolved]
  - Gingival bleeding [Unknown]
  - Arthralgia [Not Recovered/Not Resolved]
  - Penile swelling [Not Recovered/Not Resolved]
  - Urinary tract infection [Recovering/Resolving]
  - Back pain [Not Recovered/Not Resolved]
  - Mouth haemorrhage [Unknown]
  - Diarrhoea [Recovering/Resolving]
  - Penile discharge [Not Recovered/Not Resolved]
  - Fluid retention [Not Recovered/Not Resolved]
  - Tongue haemorrhage [Unknown]

NARRATIVE: CASE EVENT DATE: 201906
